FAERS Safety Report 5426278-3 (Version None)
Quarter: 2007Q3

REPORT INFORMATION
  Report Type: 
  Country: None (occurrence: None)
  Receive Date: 20070731
  Receipt Date: 20070409
  Transmission Date: 20080115
  Serious: No
  Sender: FDA-Public Use
  Company Number: 2007PV029909

PATIENT
  Age: 67 Year
  Sex: Male
  Weight: 98 kg

DRUGS (6)
  1. EXENATIDE (EXENATIDE) PEN, DISPOSABLE [Suspect]
     Indication: TYPE 2 DIABETES MELLITUS
     Dosage: 5 UG, 2/D, SUBCUTANEOUS
     Route: 058
     Dates: start: 20070111
  2. BYETTA (EXENATIDE) PEN, DISPOSABLE [Suspect]
     Indication: TYPE 2 DIABETES MELLITUS
  3. METFORMIN HCL [Concomitant]
  4. ACTOS [Concomitant]
  5. ACTOS [Concomitant]
  6. EXENATIDE UNK STRENGTH PEN, DISPOSABLE DEVICE (ECENATIDE PEN (UNKNOWN [Concomitant]

REACTIONS (14)
  - ASTHENIA [None]
  - COLD SWEAT [None]
  - DECREASED APPETITE [None]
  - DIZZINESS [None]
  - DYSPEPSIA [None]
  - DYSPHAGIA [None]
  - FEELING HOT [None]
  - HIATUS HERNIA [None]
  - MALAISE [None]
  - NASOPHARYNGITIS [None]
  - NAUSEA [None]
  - OESOPHAGEAL PAIN [None]
  - OESOPHAGEAL SPASM [None]
  - STOMACH DISCOMFORT [None]
